FAERS Safety Report 23127811 (Version 1)
Quarter: 2023Q4

REPORT INFORMATION
  Report Type: Report from Study
  Country: CA (occurrence: CA)
  Receive Date: 20231031
  Receipt Date: 20231031
  Transmission Date: 20240109
  Serious: Yes (Other)
  Sender: FDA-Public Use
  Company Number: CA-ABBVIE-5474000

PATIENT
  Sex: Female

DRUGS (1)
  1. BOTOX [Suspect]
     Active Substance: ONABOTULINUMTOXINA
     Indication: Migraine
     Dosage: TIME INTERVAL: AS NECESSARY
     Route: 065
     Dates: start: 20230511, end: 20230511

REACTIONS (6)
  - Loss of consciousness [Recovered/Resolved]
  - Concussion [Recovering/Resolving]
  - Head injury [Recovering/Resolving]
  - Neck injury [Recovering/Resolving]
  - Fall [Recovered/Resolved]
  - Post-traumatic headache [Recovering/Resolving]

NARRATIVE: CASE EVENT DATE: 20230101
